FAERS Safety Report 20825848 (Version 1)
Quarter: 2022Q2

REPORT INFORMATION
  Report Type: Spontaneous
  Country: US (occurrence: None)
  Receive Date: 20220512
  Receipt Date: 20220512
  Transmission Date: 20220720
  Serious: Yes (Hospitalization)
  Sender: FDA-Public Use
  Company Number: None

PATIENT
  Age: 66 Year
  Sex: Male
  Weight: 110.22 kg

DRUGS (9)
  1. LENALIDOMIDE [Suspect]
     Active Substance: LENALIDOMIDE
     Indication: Plasma cell myeloma
     Dosage: OTHER FREQUENCY : 14D Q 21D;?
     Route: 048
  2. ACETAMINOPHEN [Concomitant]
     Active Substance: ACETAMINOPHEN
  3. BLOOD SUGAR DIAGNOSTICS [Concomitant]
  4. ELIQUIS [Concomitant]
     Active Substance: APIXABAN
  5. HUMALOG [Concomitant]
     Active Substance: INSULIN LISPRO
  6. HYZAAR [Concomitant]
     Active Substance: HYDROCHLOROTHIAZIDE\LOSARTAN POTASSIUM
  7. METOPROLOL [Concomitant]
     Active Substance: METOPROLOL
  8. SIMVASTATIN [Concomitant]
     Active Substance: SIMVASTATIN
  9. ZETIA [Concomitant]
     Active Substance: EZETIMIBE

REACTIONS (1)
  - Hospitalisation [None]
